FAERS Safety Report 7705104-3 (Version None)
Quarter: 2011Q3

REPORT INFORMATION
  Report Type: 
  Country: None (occurrence: None)
  Receive Date: 20110824
  Receipt Date: 20110815
  Transmission Date: 20111222
  Serious: Yes (Other)
  Sender: FDA-Public Use
  Company Number: DE-AMGEN-DEUSP2011041778

PATIENT
  Age: 58 Year
  Sex: Female

DRUGS (3)
  1. CORTISONE ACETATE [Concomitant]
     Dosage: 5 MG, 1X/DAY
  2. ENBREL [Suspect]
     Indication: RHEUMATOID ARTHRITIS
     Dosage: 50 MG, WEEKLY
     Dates: start: 20081201
  3. CALCIUM CARBONATE [Concomitant]
     Dosage: UNK

REACTIONS (3)
  - CAROTID PULSE ABNORMAL [None]
  - INJECTION SITE PRURITUS [None]
  - PANIC ATTACK [None]
